FAERS Safety Report 5175551-5 (Version None)
Quarter: 2006Q4

REPORT INFORMATION
  Report Type: 
  Country: None (occurrence: None)
  Receive Date: 20061215
  Receipt Date: 20061205
  Transmission Date: 20070319
  Serious: Yes (Other)
  Sender: FDA-Public Use
  Company Number: PHNU2006DE04057

PATIENT
  Age: 70 Year
  Sex: Female

DRUGS (2)
  1. SANDOSTATIN LAR [Suspect]
     Indication: CARCINOID SYNDROME
     Dosage: 20 MG, UNK
     Dates: start: 20051101
  2. INTERFERON ALFA [Suspect]
     Dates: start: 20051101

REACTIONS (2)
  - INFLUENZA LIKE ILLNESS [None]
  - WEIGHT DECREASED [None]
